FAERS Safety Report 10510662 (Version 12)
Quarter: 2017Q3

REPORT INFORMATION
  Report Type: Spontaneous
  Country: BR (occurrence: BR)
  Receive Date: 20141010
  Receipt Date: 20170817
  Transmission Date: 20171127
  Serious: Yes (Hospitalization, Other)
  Sender: FDA-Public Use
  Company Number: BR-AMGEN-BRASP2014071758

PATIENT
  Age: 60 Year
  Sex: Female
  Weight: 60 kg

DRUGS (16)
  1. SULFASALAZINE. [Concomitant]
     Active Substance: SULFASALAZINE
     Dosage: UNK
  2. NIACIN. [Concomitant]
     Active Substance: NIACIN
     Dosage: UNK
  3. CALCIUM [Concomitant]
     Active Substance: CALCIUM
     Dosage: UNK
  4. ENBREL [Suspect]
     Active Substance: ETANERCEPT
     Indication: CRYPTOCOCCOSIS
     Dosage: 50 MG, WEEKLY
     Route: 058
  5. DAONIL [Suspect]
     Active Substance: GLYBURIDE
     Indication: DIABETES MELLITUS
     Dosage: 5 MG, ONCE DAILY
     Route: 065
     Dates: start: 2012
  6. METHOTREXATE. [Interacting]
     Active Substance: METHOTREXATE
     Indication: PRODUCT USED FOR UNKNOWN INDICATION
     Dosage: UNK
     Route: 065
     Dates: start: 2014, end: 201408
  7. RISEDRONATE SODIUM/ CALCIUM [Concomitant]
     Dosage: 35 MG, WEEKLY
  8. HYDROXYCHLOROQUINE [Concomitant]
     Active Substance: HYDROXYCHLOROQUINE
     Dosage: UNK
  9. ENBREL [Suspect]
     Active Substance: ETANERCEPT
     Indication: ARTHRITIS BACTERIAL
     Dosage: 50 MG, EVERY 8 DAYS
     Route: 058
     Dates: end: 20140922
  10. NAPROXEN. [Concomitant]
     Active Substance: NAPROXEN
     Dosage: UNK
  11. LEFLUNOMIDE. [Concomitant]
     Active Substance: LEFLUNOMIDE
     Dosage: UNK
     Dates: start: 2003
  12. ENBREL [Suspect]
     Active Substance: ETANERCEPT
     Indication: RHEUMATOID ARTHRITIS
     Dosage: UNK
     Route: 065
  13. DAONIL [Suspect]
     Active Substance: GLYBURIDE
     Dosage: 2.5 MG, HALF TABLET DAILY
     Route: 065
  14. PREDNISONE. [Interacting]
     Active Substance: PREDNISONE
     Indication: PRODUCT USED FOR UNKNOWN INDICATION
     Dosage: UNK
     Route: 065
     Dates: start: 2014, end: 201408
  15. FOLIC ACID. [Concomitant]
     Active Substance: FOLIC ACID
     Dosage: UNK
  16. VITAMIN B3 [Concomitant]
     Active Substance: NIACIN
     Dosage: UNK

REACTIONS (38)
  - Pharyngeal oedema [Unknown]
  - Hyperhidrosis [Unknown]
  - Blood pressure abnormal [Unknown]
  - Cataract [Unknown]
  - Movement disorder [Not Recovered/Not Resolved]
  - Anal infection [Recovered/Resolved]
  - Visual impairment [Not Recovered/Not Resolved]
  - Dysgeusia [Unknown]
  - Injection site extravasation [Unknown]
  - Diabetes mellitus inadequate control [Unknown]
  - Dizziness [Unknown]
  - Anal neoplasm [Recovered/Resolved]
  - Fall [Unknown]
  - Chills [Recovered/Resolved]
  - Ocular hyperaemia [Unknown]
  - Therapy non-responder [Not Recovered/Not Resolved]
  - Haemorrhoids [Not Recovered/Not Resolved]
  - Headache [Recovered/Resolved]
  - Ear pain [Unknown]
  - Hypoaesthesia [Unknown]
  - Feeling abnormal [Unknown]
  - Bedridden [Not Recovered/Not Resolved]
  - Pain [Not Recovered/Not Resolved]
  - Muscular weakness [Not Recovered/Not Resolved]
  - Rectal neoplasm [Recovered/Resolved]
  - Lower limb fracture [Not Recovered/Not Resolved]
  - Pain in extremity [Recovered/Resolved]
  - Anal pruritus [Recovered/Resolved]
  - Pharyngeal mass [Unknown]
  - Tremor [Unknown]
  - Drug interaction [Unknown]
  - Pyrexia [Recovered/Resolved]
  - Arthralgia [Not Recovered/Not Resolved]
  - Anal haemorrhage [Recovered/Resolved]
  - Arthropod bite [Recovered/Resolved]
  - Monoplegia [Unknown]
  - Palpitations [Unknown]
  - Tooth disorder [Unknown]

NARRATIVE: CASE EVENT DATE: 2014
